FAERS Safety Report 21699253 (Version 3)
Quarter: 2023Q1

REPORT INFORMATION
  Report Type: Spontaneous
  Country: US (occurrence: US)
  Receive Date: 20221208
  Receipt Date: 20230125
  Transmission Date: 20230418
  Serious: Yes (Other)
  Sender: FDA-Public Use
  Company Number: US-BAYER-2022A165640

PATIENT
  Age: 30 Year
  Sex: Female

DRUGS (1)
  1. KYLEENA [Suspect]
     Active Substance: LEVONORGESTREL
     Indication: Contraception
     Dosage: 17.5?G/DAY
     Route: 015

REACTIONS (5)
  - Device breakage [Not Recovered/Not Resolved]
  - Complication of device removal [None]
  - Abdominal pain lower [None]
  - Depressed mood [None]
  - Crying [None]

NARRATIVE: CASE EVENT DATE: 20221129
